FAERS Safety Report 6725635-2 (Version None)
Quarter: 2010Q2

REPORT INFORMATION
  Report Type: 
  Country: None (occurrence: None)
  Receive Date: 20100514
  Receipt Date: 20100507
  Transmission Date: 20101027
  Serious: Yes (Death)
  Sender: FDA-Public Use
  Company Number: CO-ROCHE-701750

PATIENT
  Sex: Female

DRUGS (1)
  1. XELODA [Suspect]
     Indication: BREAST CANCER
     Dosage: FREQUENCY: EVERY DAY
     Route: 048
     Dates: start: 20081216, end: 20090119

REACTIONS (1)
  - DISEASE PROGRESSION [None]
